FAERS Safety Report 7031411-6 (Version None)
Quarter: 2010Q4

REPORT INFORMATION
  Report Type: 
  Country: None (occurrence: None)
  Receive Date: 20101006
  Receipt Date: 20100924
  Transmission Date: 20110411
  Serious: Yes (Death, Life-Threatening, Other)
  Sender: FDA-Public Use
  Company Number: GB-WYE-H17743710

PATIENT
  Age: 37 Year
  Sex: Female

DRUGS (4)
  1. VENLAFAXINE HYDROCHLORIDE [Suspect]
     Dosage: UNKNOWN
  2. CLOZAPINE [Suspect]
  3. CLOZAPINE [Suspect]
  4. DIHYDROCODEINE [Suspect]
     Dosage: UNKNOWN

REACTIONS (6)
  - CIRCULATORY COLLAPSE [None]
  - DRUG TOXICITY [None]
  - GASTROINTESTINAL HYPOMOTILITY [None]
  - HEPATIC NECROSIS [None]
  - HEPATIC STEATOSIS [None]
  - SOMNOLENCE [None]
